FAERS Safety Report 10330818 (Version 1)
Quarter: 2014Q3

REPORT INFORMATION
  Report Type: Spontaneous
  Country: US (occurrence: None)
  Receive Date: 20140718
  Receipt Date: 20140718
  Transmission Date: 20150326
  Serious: Yes (Life-Threatening, Disabling)
  Sender: FDA-Public Use
  Company Number: None

PATIENT
  Age: 48 Year
  Sex: Female
  Weight: 58.97 kg

DRUGS (1)
  1. CEFDINIR. [Suspect]
     Active Substance: CEFDINIR
     Indication: URINARY TRACT INFECTION
     Dosage: ONE CAPSULE EVERY 12 HRS FOR 1
     Route: 048
     Dates: start: 20140505, end: 20140507

REACTIONS (16)
  - Vision blurred [None]
  - Dysstasia [None]
  - Activities of daily living impaired [None]
  - Malaise [None]
  - Clostridium difficile infection [None]
  - Muscle spasms [None]
  - Pruritus [None]
  - Asthenia [None]
  - Nausea [None]
  - Abdominal distension [None]
  - Dyskinesia [None]
  - Dry mouth [None]
  - Dizziness [None]
  - Heart rate increased [None]
  - Blood pressure increased [None]
  - Pain [None]

NARRATIVE: CASE EVENT DATE: 20140505
